FAERS Safety Report 9599608 (Version 1)
Quarter: 2013Q4

REPORT INFORMATION
  Report Type: Spontaneous
  Country: US (occurrence: US)
  Receive Date: 20131004
  Receipt Date: 20131004
  Transmission Date: 20140711
  Serious: No
  Sender: FDA-Public Use
  Company Number: US-AMGEN-USASP2013029622

PATIENT
  Age: 36 Year
  Sex: Female
  Weight: 97.05 kg

DRUGS (6)
  1. ENBREL [Suspect]
     Indication: PRODUCT USED FOR UNKNOWN INDICATION
     Dosage: 50 MG, QWK
     Route: 058
     Dates: start: 2012
  2. MULTIVITAMINS, PLAIN [Concomitant]
     Dosage: UNK
  3. NORVASC [Concomitant]
     Dosage: 10 MG, UNK
  4. VITAMIN C                          /00008001/ [Concomitant]
     Dosage: 500 MG, UNK
  5. FOLIC ACID [Concomitant]
     Dosage: 20 MG, UNK
  6. VITAMIN D                          /00107901/ [Concomitant]
     Dosage: 1000 UNIT, UNK

REACTIONS (3)
  - Local swelling [Unknown]
  - Hypersensitivity [Unknown]
  - Injection site reaction [Unknown]
